FAERS Safety Report 8169638-2 (Version None)
Quarter: 2012Q1

REPORT INFORMATION
  Report Type: 
  Country: None (occurrence: None)
  Receive Date: 20120228
  Receipt Date: 20120223
  Transmission Date: 20120608
  Serious: No
  Sender: FDA-Public Use
  Company Number: US-PFIZER INC-2009176627

PATIENT
  Sex: Male
  Weight: 97.506 kg

DRUGS (7)
  1. NORVASC [Concomitant]
     Indication: HYPERTENSION
     Dosage: 5 MG, 1X/DAY
     Route: 048
     Dates: end: 20080101
  2. CARAFATE [Concomitant]
     Indication: PEPTIC ULCER
     Dosage: UNK
  3. REGLAN [Concomitant]
     Dosage: UNK
  4. AMLODIPINE BESYLATE [Suspect]
     Indication: HYPERTENSION
     Dosage: 5 MG, 1X/DAY
     Route: 048
     Dates: start: 20070420, end: 20070101
  5. AMLODIPINE BESYLATE [Suspect]
     Dosage: 5 MG, 1X/DAY
     Route: 048
     Dates: start: 20080101
  6. PEPCID [Concomitant]
     Indication: PEPTIC ULCER
     Dosage: UNK
  7. PROTONIX [Concomitant]
     Dosage: UNK

REACTIONS (3)
  - ABDOMINAL PAIN UPPER [None]
  - MALAISE [None]
  - ABDOMINAL PAIN [None]
